FAERS Safety Report 10088285 (Version 3)
Quarter: 2014Q3

REPORT INFORMATION
  Report Type: Spontaneous
  Country: US (occurrence: US)
  Receive Date: 20140421
  Receipt Date: 20140923
  Transmission Date: 20150326
  Serious: Yes (Death, Hospitalization, Other)
  Sender: FDA-Public Use
  Company Number: US-PAR PHARMACEUTICAL, INC-2014SCPR009009

PATIENT

DRUGS (5)
  1. FENTANYL CITRATE. [Suspect]
     Active Substance: FENTANYL CITRATE
     Indication: PRODUCT USED FOR UNKNOWN INDICATION
     Dosage: UNK, UNKNOWN
     Route: 065
  2. DURAGESIC [Concomitant]
     Active Substance: FENTANYL
     Indication: POST LAMINECTOMY SYNDROME
     Dosage: 100 MCG, EVERY 48 HOURS
     Route: 065
  3. ROXICODONE [Concomitant]
     Active Substance: OXYCODONE HYDROCHLORIDE
     Indication: POST LAMINECTOMY SYNDROME
     Dosage: 30 MG, QID
     Route: 048
  4. MORPHINE SULFATE. [Suspect]
     Active Substance: MORPHINE SULFATE
     Indication: POST LAMINECTOMY SYNDROME
     Dosage: UNK UNK, UNKNOWN
     Route: 065
  5. ACTIQ [Suspect]
     Active Substance: FENTANYL CITRATE
     Indication: POST LAMINECTOMY SYNDROME
     Dosage: 1600 MCG EVERY FOUR HOURS AS NEEDED
     Route: 048
     Dates: end: 201305

REACTIONS (3)
  - Respiratory failure [Unknown]
  - Death [Fatal]
  - Pneumonia [Unknown]

NARRATIVE: CASE EVENT DATE: 2013
